FAERS Safety Report 6911276-0 (Version None)
Quarter: 2010Q3

REPORT INFORMATION
  Report Type: 
  Country: None (occurrence: None)
  Receive Date: 20100806
  Receipt Date: 20100802
  Transmission Date: 20110219
  Serious: Yes (Hospitalization, Other)
  Sender: FDA-Public Use
  Company Number: PHHY2010BR21592

PATIENT
  Sex: Female

DRUGS (1)
  1. DIOVAN [Suspect]
     Dosage: 80 MG, PRN

REACTIONS (6)
  - BLOOD PRESSURE DECREASED [None]
  - FEMUR FRACTURE [None]
  - HYPERTENSION [None]
  - PULMONARY HAEMORRHAGE [None]
  - SENILE DEMENTIA [None]
  - URINARY TRACT INFECTION [None]
